FAERS Safety Report 16615068 (Version 1)
Quarter: 2019Q3

REPORT INFORMATION
  Report Type: Spontaneous
  Country: US (occurrence: US)
  Receive Date: 20190610
  Receipt Date: 20190610
  Transmission Date: 20191004
  Serious: Yes (Death)
  Sender: FDA-Public Use
  Company Number: None

PATIENT
  Age: 54 Year
  Sex: Female

DRUGS (2)
  1. TEMOZOLOMIDE, 140 MG [Suspect]
     Active Substance: TEMOZOLOMIDE
     Indication: PRODUCT USED FOR UNKNOWN INDICATION
     Route: 048
     Dates: start: 20190517
  2. TEMOZOLOMIDE 20MG [Suspect]
     Active Substance: TEMOZOLOMIDE
     Route: 048
     Dates: start: 20190517

REACTIONS (1)
  - Death [None]

NARRATIVE: CASE EVENT DATE: 20190607
